FAERS Safety Report 21978054 (Version 1)
Quarter: 2023Q1

REPORT INFORMATION
  Report Type: Spontaneous
  Country: US (occurrence: US)
  Receive Date: 20230210
  Receipt Date: 20230210
  Transmission Date: 20230417
  Serious: No
  Sender: FDA-Public Use
  Company Number: US-Millicent Holdings Ltd.-MILL20230039

PATIENT
  Age: 81 Year
  Sex: Female

DRUGS (2)
  1. FEMRING [Suspect]
     Active Substance: ESTRADIOL ACETATE
     Indication: Atrophic vulvovaginitis
     Dosage: 0.05 MG / DAY
     Route: 067
     Dates: start: 20230207, end: 20230207
  2. FEMRING [Suspect]
     Active Substance: ESTRADIOL ACETATE
     Dosage: 0.05 MG / DAY
     Route: 067
     Dates: start: 2008

REACTIONS (3)
  - Vulvovaginal discomfort [Recovered/Resolved]
  - Product use issue [Not Recovered/Not Resolved]
  - Product physical issue [Recovered/Resolved]

NARRATIVE: CASE EVENT DATE: 20230207
